FAERS Safety Report 14125010 (Version 2)
Quarter: 2017Q4

REPORT INFORMATION
  Report Type: Report from Study
  Country: CA (occurrence: CA)
  Receive Date: 20171025
  Receipt Date: 20171113
  Transmission Date: 20180321
  Serious: Yes (Hospitalization, Other)
  Sender: FDA-Public Use
  Company Number: CA-TAKEDA-2017TUS021907

PATIENT
  Age: 38 Year
  Sex: Female

DRUGS (21)
  1. GRAVOL [Concomitant]
     Active Substance: DIMENHYDRINATE
     Dosage: 50 MG, TID
  2. QUETIAPINE XR [Concomitant]
     Active Substance: QUETIAPINE
     Dosage: UNK
  3. ZOPICLONE [Concomitant]
     Active Substance: ZOPICLONE
     Dosage: 7.5 MG, UNK
  4. EPIPEN [Concomitant]
     Active Substance: EPINEPHRINE
     Dosage: UNK
  5. SYNTHROID [Concomitant]
     Active Substance: LEVOTHYROXINE SODIUM
     Dosage: UNK
     Route: 048
  6. VEDOLIZUMAB [Suspect]
     Active Substance: VEDOLIZUMAB
     Indication: CROHN^S DISEASE
     Dosage: 300 MG, UNK
     Route: 042
     Dates: start: 20161111
  7. VALACYCLOVIR [Concomitant]
     Active Substance: VALACYCLOVIR HYDROCHLORIDE
     Indication: PROPHYLAXIS
     Dosage: UNK UNK, BID
  8. VITAMIN B12 [Concomitant]
     Active Substance: CYANOCOBALAMIN
  9. ESTROGEN [Concomitant]
     Active Substance: ESTROGENS
     Dosage: UNK
     Route: 061
  10. QUETIAPINE. [Concomitant]
     Active Substance: QUETIAPINE
     Dosage: 200 MG, UNK
  11. SUPEUDOL [Concomitant]
     Active Substance: OXYCODONE HYDROCHLORIDE
     Dosage: UNK
  12. DOMPERIDONE [Concomitant]
     Active Substance: DOMPERIDONE
     Dosage: 10 MG, TID
     Route: 048
  13. VEDOLIZUMAB [Suspect]
     Active Substance: VEDOLIZUMAB
     Dosage: 300 MG, UNK
     Route: 042
     Dates: start: 20170727
  14. ACETAMINOPHEN. [Concomitant]
     Active Substance: ACETAMINOPHEN
     Dosage: 1000 MG, QID
     Route: 048
  15. NYSTATIN. [Concomitant]
     Active Substance: NYSTATIN
     Dosage: UNK
  16. QUETIAPINE. [Concomitant]
     Active Substance: QUETIAPINE
     Dosage: 100 MG, BID
  17. ONDANSETRON [Concomitant]
     Active Substance: ONDANSETRON
     Dosage: 8 MG, BID
  18. DOVOBET [Concomitant]
     Active Substance: BETAMETHASONE\CALCIPOTRIENE
     Dosage: UNK
  19. MEDROXY [Concomitant]
     Active Substance: MEDROXYPROGESTERONE ACETATE
     Dosage: 2.5 MG, UNK
  20. MYLAN-DEZOMEPRAZOLE [Concomitant]
     Dosage: 40 MG, UNK
  21. TRAZODONE [Concomitant]
     Active Substance: TRAZODONE HYDROCHLORIDE
     Dosage: 100 MG, UNK

REACTIONS (3)
  - Gallbladder disorder [Unknown]
  - Pancreatitis [Recovered/Resolved]
  - Off label use [Unknown]

NARRATIVE: CASE EVENT DATE: 20170727
